FAERS Safety Report 6161646-6 (Version None)
Quarter: 2009Q2

REPORT INFORMATION
  Report Type: 
  Country: None (occurrence: None)
  Receive Date: 20090421
  Receipt Date: 20090409
  Transmission Date: 20091009
  Serious: Yes (Death, Life-Threatening)
  Sender: FDA-Public Use
  Company Number: GB-TEVA-188079ISR

PATIENT
  Age: 11 Year
  Sex: Male

DRUGS (3)
  1. ETOPOSIDE, INJECTION, 20 MG/ML [Suspect]
     Indication: LEUKAEMIA RECURRENT
     Route: 042
     Dates: start: 20090101, end: 20090109
  2. CLOFARABINE [Suspect]
     Indication: LEUKAEMIA RECURRENT
     Route: 042
     Dates: start: 20090101, end: 20090109
  3. CYCLOPHOSPHAMIDE [Suspect]
     Indication: LEUKAEMIA RECURRENT
     Route: 042
     Dates: start: 20090101, end: 20090109

REACTIONS (2)
  - NEUTROPENIC COLITIS [None]
  - SEPSIS [None]
